FAERS Safety Report 9377050 (Version 3)
Quarter: 2013Q3

REPORT INFORMATION
  Report Type: Spontaneous
  Country: US (occurrence: US)
  Receive Date: 20130701
  Receipt Date: 20130726
  Transmission Date: 20140515
  Serious: Yes (Other)
  Sender: FDA-Public Use
  Company Number: US-PFIZER INC-2013190952

PATIENT
  Age: 83 Year
  Sex: Female
  Weight: 83.9 kg

DRUGS (6)
  1. LATANOPROST [Suspect]
     Indication: GLAUCOMA
     Dosage: UNK, 1X/DAY
     Dates: end: 2013
  2. PREDNISOLONE [Suspect]
     Dosage: UNK, 4X/DAY
  3. COMBIGAN [Concomitant]
     Indication: GLAUCOMA
     Dosage: UNK, 2X/DAY
  4. HYDROCHLOROTHIAZIDE [Concomitant]
     Indication: HYPERTENSION
     Dosage: 12.5 MG, 1X/DAY
  5. AMLODIPINE [Concomitant]
     Indication: HYPERTENSION
     Dosage: 8 MG, 1X/DAY
  6. ZOLAMIDE [Concomitant]
     Indication: GLAUCOMA
     Dosage: UNK, 2X/DAY

REACTIONS (6)
  - Visual acuity reduced [Unknown]
  - Eye irritation [Unknown]
  - Drug ineffective [Unknown]
  - Drug intolerance [Unknown]
  - Vision blurred [Recovered/Resolved]
  - Impaired driving ability [Recovered/Resolved]
